FAERS Safety Report 9924664 (Version 2)
Quarter: 2014Q2

REPORT INFORMATION
  Report Type: Spontaneous
  Country: GB (occurrence: None)
  Receive Date: 20140220
  Receipt Date: 20140506
  Transmission Date: 20141212
  Serious: Yes (Disabling)
  Sender: FDA-Public Use
  Company Number: FK201400502

PATIENT
  Age: 62 Year
  Sex: Female
  Weight: 68.5 kg

DRUGS (6)
  1. ANASTROZOLE (MANUFACTURER UNKNOWN) (ANASTROZOLE) (ANASTROZOLE) [Suspect]
     Indication: PRODUCT USED FOR UNKNOWN INDICATION
     Dates: start: 20140103
  2. ARIMDEX (ANASTROZOLE) [Concomitant]
  3. MORPHINE SULPHATE (MORPHINE SULFATE) [Concomitant]
  4. PARACETAMOL [Suspect]
  5. CETRIMIDE (CETRIMIDE) [Concomitant]
  6. CLARITHROMYCIN (CLARYTHROMCIN) [Concomitant]

REACTIONS (3)
  - Raynaud^s phenomenon [None]
  - Vasculitis [None]
  - Gangrene [None]
